FAERS Safety Report 20727515 (Version 1)
Quarter: 2022Q2

REPORT INFORMATION
  Report Type: Spontaneous
  Country: US (occurrence: None)
  Receive Date: 20220419
  Receipt Date: 20220419
  Transmission Date: 20220720
  Serious: No
  Sender: FDA-Public Use
  Company Number: US-ROCHE-2900877

PATIENT

DRUGS (3)
  1. AVASTIN [Suspect]
     Active Substance: BEVACIZUMAB
     Indication: Neovascular age-related macular degeneration
     Route: 065
  2. AVASTIN [Suspect]
     Active Substance: BEVACIZUMAB
     Indication: Visual field defect
  3. AVASTIN [Suspect]
     Active Substance: BEVACIZUMAB
     Indication: Central vision loss

REACTIONS (3)
  - Off label use [Unknown]
  - Discomfort [Unknown]
  - Unevaluable event [Unknown]
